FAERS Safety Report 7904883-X (Version None)
Quarter: 2011Q4

REPORT INFORMATION
  Report Type: 
  Country: None (occurrence: None)
  Receive Date: 20111109
  Receipt Date: 20111025
  Transmission Date: 20120403
  Serious: Yes (Hospitalization)
  Sender: FDA-Public Use
  Company Number: PHHY2010DE71243

PATIENT
  Sex: Female

DRUGS (2)
  1. SANDIMMUNE [Suspect]
     Indication: TRANSPLANT
     Route: 048
     Dates: start: 20061201
  2. DICLOFENAC SODIUM [Suspect]

REACTIONS (2)
  - ERYSIPELAS [None]
  - FEELING HOT [None]
